FAERS Safety Report 15281062 (Version 1)
Quarter: 2018Q3

REPORT INFORMATION
  Report Type: Spontaneous
  Country: US (occurrence: US)
  Receive Date: 20180815
  Receipt Date: 20180815
  Transmission Date: 20181010
  Serious: Yes (Other)
  Sender: FDA-Public Use
  Company Number: US-PFIZER INC-2018320928

PATIENT
  Age: 71 Year
  Sex: Female
  Weight: 104.3 kg

DRUGS (1)
  1. CELEBREX [Suspect]
     Active Substance: CELECOXIB
     Indication: ADENOMATOUS POLYPOSIS COLI
     Dosage: UNK
     Dates: start: 2018, end: 201806

REACTIONS (2)
  - Product use in unapproved indication [Unknown]
  - Sepsis [Unknown]
